FAERS Safety Report 18980410 (Version 1)
Quarter: 2021Q1

REPORT INFORMATION
  Report Type: Spontaneous
  Country: US (occurrence: US)
  Receive Date: 20210306
  Receipt Date: 20210306
  Transmission Date: 20210420
  Serious: Yes (Life-Threatening, Hospitalization)
  Sender: FDA-Public Use
  Company Number: None

PATIENT
  Age: 48 Year
  Sex: Female
  Weight: 57.15 kg

DRUGS (1)
  1. PAROEX [Suspect]
     Active Substance: CHLORHEXIDINE GLUCONATE
     Indication: GINGIVITIS

REACTIONS (4)
  - Pulmonary pain [None]
  - Pulmonary mass [None]
  - Bacterial infection [None]
  - Dyspnoea [None]

NARRATIVE: CASE EVENT DATE: 20200314
